FAERS Safety Report 16968128 (Version 1)
Quarter: 2019Q4

REPORT INFORMATION
  Report Type: Spontaneous
  Country: CH (occurrence: CH)
  Receive Date: 20191028
  Receipt Date: 20191028
  Transmission Date: 20200122
  Serious: Yes (Life-Threatening)
  Sender: FDA-Public Use
  Company Number: CH-B.BRAUN MEDICAL INC.-2076094

PATIENT
  Age: 68 Year
  Sex: Male

DRUGS (2)
  1. ATROPINE. [Concomitant]
     Active Substance: ATROPINE
  2. HEPARIN SODIUM IN DEXTROSE [Suspect]
     Active Substance: HEPARIN SODIUM
     Route: 042
     Dates: start: 20191004, end: 20191004

REACTIONS (1)
  - Drug ineffective [Recovered/Resolved]

NARRATIVE: CASE EVENT DATE: 20191004
